FAERS Safety Report 5110269-6 (Version None)
Quarter: 2006Q3

REPORT INFORMATION
  Report Type: 
  Country: None (occurrence: None)
  Receive Date: 20060921
  Receipt Date: 20060913
  Transmission Date: 20061208
  Serious: Yes (Hospitalization)
  Sender: FDA-Public Use
  Company Number: GB-GLAXOSMITHKLINE-B0438022A

PATIENT
  Sex: Female

DRUGS (4)
  1. LAMICTAL [Suspect]
     Route: 048
  2. CLARITHROMYCIN [Suspect]
     Dosage: 250MG TWICE PER DAY
  3. MICRONOR [Concomitant]
     Indication: CONTRACEPTION
     Route: 048
  4. IBUPROFEN [Concomitant]

REACTIONS (2)
  - CONVULSION [None]
  - DRUG INTERACTION [None]
